FAERS Safety Report 18176465 (Version 6)
Quarter: 2020Q4

REPORT INFORMATION
  Report Type: Spontaneous
  Country: US (occurrence: US)
  Receive Date: 20200820
  Receipt Date: 20201105
  Transmission Date: 20210113
  Serious: Yes (Hospitalization)
  Sender: FDA-Public Use
  Company Number: US-SEATTLE GENETICS-2020SGN03437

PATIENT
  Sex: Female

DRUGS (1)
  1. TUKYSA [Suspect]
     Active Substance: TUCATINIB
     Indication: BREAST CANCER FEMALE

REACTIONS (7)
  - Hospitalisation [Unknown]
  - Unevaluable event [Unknown]
  - Asthenia [Unknown]
  - Liver function test increased [Unknown]
  - Insomnia [Unknown]
  - Visual impairment [Unknown]
  - Hospice care [Unknown]
